FAERS Safety Report 4464033-1 (Version None)
Quarter: 2004Q4

REPORT INFORMATION
  Report Type: 
  Country: None (occurrence: None)
  Receive Date: 20041001
  Receipt Date: 20040922
  Transmission Date: 20050328
  Serious: Yes (Other)
  Sender: FDA-Public Use
  Company Number: FR-ABBOTT-04P-056-0274411-00

PATIENT
  Age: 45 Year
  Sex: Male

DRUGS (1)
  1. DEPAKINE TABLETS [Suspect]
     Indication: CONVULSION PROPHYLAXIS
     Route: 048
     Dates: start: 20040821, end: 20040904

REACTIONS (3)
  - HEPATOCELLULAR DAMAGE [None]
  - LYMPHADENOPATHY [None]
  - PANCREATITIS [None]
